FAERS Safety Report 25207040 (Version 2)
Quarter: 2025Q2

REPORT INFORMATION
  Report Type: Report from Study
  Country: AU (occurrence: AU)
  Receive Date: 20250417
  Receipt Date: 20250613
  Transmission Date: 20250717
  Serious: Yes (Hospitalization)
  Sender: MYLAN
  Company Number: AU-MYLANLABS-2025M1032746

PATIENT
  Age: 63 Year
  Sex: Male

DRUGS (12)
  1. DOCETAXEL [Suspect]
     Active Substance: DOCETAXEL
     Indication: Salivary gland cancer
  2. DOCETAXEL [Suspect]
     Active Substance: DOCETAXEL
     Route: 065
  3. DOCETAXEL [Suspect]
     Active Substance: DOCETAXEL
     Route: 065
  4. DOCETAXEL [Suspect]
     Active Substance: DOCETAXEL
  5. GOSERELIN [Suspect]
     Active Substance: GOSERELIN
     Indication: Salivary gland cancer
  6. GOSERELIN [Suspect]
     Active Substance: GOSERELIN
     Route: 065
  7. GOSERELIN [Suspect]
     Active Substance: GOSERELIN
     Route: 065
  8. GOSERELIN [Suspect]
     Active Substance: GOSERELIN
  9. TRASTUZUMAB [Suspect]
     Active Substance: TRASTUZUMAB
     Indication: Salivary gland cancer
  10. TRASTUZUMAB [Suspect]
     Active Substance: TRASTUZUMAB
     Route: 065
  11. TRASTUZUMAB [Suspect]
     Active Substance: TRASTUZUMAB
     Route: 065
  12. TRASTUZUMAB [Suspect]
     Active Substance: TRASTUZUMAB

REACTIONS (1)
  - Drug ineffective [Unknown]
